FAERS Safety Report 7995295-1 (Version None)
Quarter: 2011Q4

REPORT INFORMATION
  Report Type: 
  Country: None (occurrence: None)
  Receive Date: 20111220
  Receipt Date: 20111205
  Transmission Date: 20120403
  Serious: Yes (Hospitalization)
  Sender: FDA-Public Use
  Company Number: US-WATSON-2011-21404

PATIENT
  Age: 66 Year
  Sex: Male

DRUGS (1)
  1. DIPHENHYDRAMINE HCL [Suspect]
     Indication: NASAL CONGESTION
     Dosage: 3 TABLETS

REACTIONS (6)
  - MENTAL STATUS CHANGES [None]
  - URINARY RETENTION [None]
  - CONVULSION [None]
  - POLYDIPSIA [None]
  - RHABDOMYOLYSIS [None]
  - HYPONATRAEMIA [None]
